FAERS Safety Report 6030945-0 (Version None)
Quarter: 2009Q1

REPORT INFORMATION
  Report Type: 
  Country: None (occurrence: None)
  Receive Date: 20090106
  Receipt Date: 20081226
  Transmission Date: 20090719
  Serious: Yes (Death, Life-Threatening, Hospitalization)
  Sender: FDA-Public Use
  Company Number: CERZ-1000052

PATIENT
  Age: 3 Month
  Sex: Male
  Weight: 8.2 kg

DRUGS (21)
  1. CEREZYME [Suspect]
     Indication: GAUCHER'S DISEASE
     Dosage: 60 U/KG,Q2W, INTRAVENOUS; 600 U/I, INTRAVENOUS; 400 U, Q2W, INTRAVENOUS
     Route: 042
     Dates: start: 20060927, end: 20080101
  2. CEREZYME [Suspect]
     Indication: GAUCHER'S DISEASE
     Dosage: 60 U/KG,Q2W, INTRAVENOUS; 600 U/I, INTRAVENOUS; 400 U, Q2W, INTRAVENOUS
     Route: 042
     Dates: end: 20080410
  3. CEREZYME [Suspect]
     Indication: GAUCHER'S DISEASE
     Dosage: 60 U/KG,Q2W, INTRAVENOUS; 600 U/I, INTRAVENOUS; 400 U, Q2W, INTRAVENOUS
     Route: 042
     Dates: start: 20080128
  4. ANTIBIOTICS-RESISTANT LACTIC ACID BACTERIAE [Concomitant]
  5. ZONISAMIDE [Concomitant]
  6. MIXED KILLED BACTERIA PREPARATIONS [Concomitant]
  7. CARBOCISTEINE [Concomitant]
  8. PROCATEROL HCL [Concomitant]
  9. AMBROXOL HYDROCHLORIDE [Concomitant]
  10. DIAZEPAM [Concomitant]
  11. TRICHLORETHYL PHOSPHATE SODIUM [Concomitant]
  12. CLONAZEPAM [Concomitant]
  13. CEFOTIAM HYDROCHLORIDE [Concomitant]
  14. SODIUM BICARBONATE [Concomitant]
  15. SEVOFLURANE [Concomitant]
  16. NITROUS OXIDE [Concomitant]
  17. VECURONIUM BROMIDE [Concomitant]
  18. ATROPINE SULFATE [Concomitant]
  19. CARBAMAZEPINE [Concomitant]
  20. VALPROATE SODIUM [Concomitant]
  21. CEFDITOREN PIVOXIL [Concomitant]

REACTIONS (17)
  - ALVEOLAR PROTEINOSIS [None]
  - APNOEIC ATTACK [None]
  - BRONCHITIS [None]
  - CONJUNCTIVITIS [None]
  - CONVULSION [None]
  - DEHYDRATION [None]
  - FLUID INTAKE REDUCED [None]
  - GASTROENTERITIS [None]
  - INSOMNIA [None]
  - INTERSTITIAL LUNG DISEASE [None]
  - NASOPHARYNGITIS [None]
  - PNEUMONIA ASPIRATION [None]
  - PNEUMONIA RESPIRATORY SYNCYTIAL VIRAL [None]
  - POST PROCEDURAL COMPLICATION [None]
  - RESPIRATORY ARREST [None]
  - RESPIRATORY FAILURE [None]
  - UPPER RESPIRATORY TRACT INFLAMMATION [None]
